FAERS Safety Report 9438104 (Version 1)
Quarter: 2013Q3

REPORT INFORMATION
  Report Type: Spontaneous
  Country: US (occurrence: None)
  Receive Date: 20130802
  Receipt Date: 20130802
  Transmission Date: 20140515
  Serious: Yes (Other)
  Sender: FDA-Public Use
  Company Number: None

PATIENT
  Age: 75 Year
  Sex: Male
  Weight: 81.65 kg

DRUGS (17)
  1. TAXOTERE [Suspect]
     Indication: PROSTATE CANCER
     Dosage: 150 MG IVPB/
     Dates: start: 20130724
  2. RAD001 [Suspect]
     Indication: PROSTATE CANCER
     Dosage: 2.5 MG PO
     Route: 048
     Dates: start: 20130725
  3. BEVACIZUMAB [Suspect]
     Indication: PROSTATE CANCER
     Dosage: 1250  IVPB
     Dates: start: 20130731
  4. DIOVAN [Concomitant]
  5. LIPITOR [Concomitant]
  6. NORVASC [Concomitant]
  7. TRIPLEX DM [Concomitant]
  8. SYNTHROID [Concomitant]
  9. LUPRON [Concomitant]
  10. FISH OIL [Concomitant]
  11. CALCIUM CITRATE [Concomitant]
  12. B-12 [Concomitant]
  13. TYLENOL [Concomitant]
  14. ZOFRAN [Concomitant]
  15. COMPAZINE [Concomitant]
  16. DECADRON [Concomitant]
  17. BABY ASA [Concomitant]

REACTIONS (1)
  - Febrile neutropenia [None]
